FAERS Safety Report 5973292-5 (Version None)
Quarter: 2008Q4

REPORT INFORMATION
  Report Type: 
  Country: None (occurrence: None)
  Receive Date: 20081201
  Receipt Date: 20081118
  Transmission Date: 20090506
  Serious: Yes (Hospitalization)
  Sender: FDA-Public Use
  Company Number: FI-ASTRAZENECA-2008SE05410

PATIENT
  Age: 834 Month
  Sex: Male

DRUGS (10)
  1. CRESTOR [Suspect]
     Route: 048
  2. THYROXIN [Concomitant]
     Dosage: 1X1 EXCEPT 1X1.5 ON SATURDAY AND SUNDAY
     Route: 048
  3. NEXIUM [Concomitant]
     Route: 048
  4. LANTUS [Concomitant]
     Route: 058
  5. LEVOLAC [Concomitant]
     Dosage: IF NECESSARY
     Route: 048
  6. ORLOC [Concomitant]
     Route: 048
  7. PRIMPERAN TAB [Concomitant]
     Dosage: IF NECESSARY
  8. LITALGIN [Concomitant]
     Dosage: IF NECESSARY
  9. NOVORAPID [Concomitant]
     Dosage: IF NECESSARY
  10. TEMESTA [Concomitant]
     Dosage: 0.5-1X1
     Route: 048

REACTIONS (1)
  - HEPATIC NECROSIS [None]
